FAERS Safety Report 8202633-3 (Version None)
Quarter: 2012Q1

REPORT INFORMATION
  Report Type: 
  Country: None (occurrence: None)
  Receive Date: 20120312
  Receipt Date: 20120309
  Transmission Date: 20120608
  Serious: Yes (Death)
  Sender: FDA-Public Use
  Company Number: US-PFIZER INC-2012063349

PATIENT
  Age: 42 Year
  Sex: Male

DRUGS (6)
  1. ALPRAZOLAM [Suspect]
     Dosage: UNK
  2. MORPHINE SULFATE [Suspect]
     Dosage: UNK
  3. OXYMORPHONE [Suspect]
     Dosage: UNK
  4. OXYCODONE HCL [Suspect]
     Dosage: UNK
  5. CARBAMAZEPINE [Suspect]
     Dosage: UNK
  6. DIAZEPAM [Suspect]
     Dosage: UNK

REACTIONS (1)
  - TOXICITY TO VARIOUS AGENTS [None]
